FAERS Safety Report 4293874-9 (Version None)
Quarter: 2004Q1

REPORT INFORMATION
  Report Type: 
  Country: None (occurrence: None)
  Receive Date: 20040210
  Receipt Date: 20040202
  Transmission Date: 20041129
  Serious: Yes (Other)
  Sender: FDA-Public Use
  Company Number: 230365K04USA

PATIENT
  Age: 24 Year
  Sex: Female
  Weight: 56.6996 kg

DRUGS (5)
  1. REBIF [Suspect]
     Indication: MULTIPLE SCLEROSIS
     Dosage: 44 MCG, 3 IN 1 WEEKS, SUBCUTANEOUS
     Route: 058
     Dates: start: 20031001
  2. AZATHIOPRINE [Concomitant]
  3. PAROXETINE HCL [Concomitant]
  4. MODAFINIL [Concomitant]
  5. LORAZEPAM [Concomitant]

REACTIONS (2)
  - GRAND MAL CONVULSION [None]
  - ROAD TRAFFIC ACCIDENT [None]
